FAERS Safety Report 7875767-0 (Version None)
Quarter: 2011Q4

REPORT INFORMATION
  Report Type: 
  Country: None (occurrence: None)
  Receive Date: 20111031
  Receipt Date: 20111024
  Transmission Date: 20120403
  Serious: Yes (Other)
  Sender: FDA-Public Use
  Company Number: FR-JNJFOC-20111012860

PATIENT

DRUGS (23)
  1. DOXORUBICIN HCL [Suspect]
     Route: 042
  2. METHOTREXATE [Suspect]
     Indication: LYMPHOMA
     Route: 037
  3. DOXORUBICIN HCL [Suspect]
     Route: 042
  4. MESNA [Suspect]
     Route: 042
  5. BLEOMYCIN SULFATE [Suspect]
     Route: 042
  6. PREDNISONE [Suspect]
     Indication: LYMPHOMA
     Route: 048
  7. DOXORUBICIN HCL [Suspect]
     Indication: LYMPHOMA
     Route: 042
  8. CYCLOPHOSPHAMIDE [Suspect]
     Indication: LYMPHOMA
     Route: 065
  9. MESNA [Suspect]
     Route: 042
  10. BLEOMYCIN SULFATE [Suspect]
     Indication: LYMPHOMA
     Route: 042
  11. BLEOMYCIN SULFATE [Suspect]
     Route: 042
  12. CYCLOPHOSPHAMIDE [Suspect]
     Route: 065
  13. CYCLOPHOSPHAMIDE [Suspect]
     Route: 065
  14. MESNA [Suspect]
     Route: 042
  15. ELDISINE [Suspect]
     Indication: LYMPHOMA
     Route: 065
  16. DOXORUBICIN HCL [Suspect]
     Route: 042
  17. CYCLOPHOSPHAMIDE [Suspect]
     Route: 065
  18. MESNA [Suspect]
     Indication: LYMPHOMA
     Route: 042
  19. ELDISINE [Suspect]
     Route: 065
  20. ELDISINE [Suspect]
     Route: 065
  21. ELDISINE [Suspect]
     Route: 065
  22. BLEOMYCIN SULFATE [Suspect]
     Route: 042
  23. NEUPOGEN [Concomitant]
     Route: 065

REACTIONS (1)
  - GASTROINTESTINAL TOXICITY [None]
